FAERS Safety Report 4526040-X (Version None)
Quarter: 2004Q4

REPORT INFORMATION
  Report Type: 
  Country: None (occurrence: None)
  Receive Date: 20041129
  Receipt Date: 20040827
  Transmission Date: 20050328
  Serious: Yes (Hospitalization, Other)
  Sender: FDA-Public Use
  Company Number: USA040876682

PATIENT
  Age: 38 Year
  Sex: Female

DRUGS (6)
  1. ZYPREXA [Suspect]
     Indication: MANIA
     Dosage: 15 MG
  2. CELEXA [Concomitant]
  3. LEVOXYL [Concomitant]
  4. NEURONTIN [Concomitant]
  5. DEPAKOTE [Concomitant]
  6. PERPHENAZINE [Concomitant]

REACTIONS (1)
  - BLOOD GLUCOSE INCREASED [None]
